FAERS Safety Report 18795998 (Version 1)
Quarter: 2021Q1

REPORT INFORMATION
  Report Type: Spontaneous
  Country: HU (occurrence: HU)
  Receive Date: 20210127
  Receipt Date: 20210127
  Transmission Date: 20210419
  Serious: Yes (Other)
  Sender: FDA-Public Use
  Company Number: NVSC2019HU094832

PATIENT
  Age: 59 Year
  Sex: Male

DRUGS (11)
  1. DICLOFENAC [Suspect]
     Active Substance: DICLOFENAC
     Indication: PRODUCT USED FOR UNKNOWN INDICATION
     Dosage: UNK
     Route: 065
     Dates: start: 20181019
  2. AMOXICILLIN SODIUM [Suspect]
     Active Substance: AMOXICILLIN SODIUM
     Indication: PRODUCT USED FOR UNKNOWN INDICATION
     Dosage: UNK
     Route: 042
  3. DABRAFENIB [Suspect]
     Active Substance: DABRAFENIB
     Indication: PRODUCT USED FOR UNKNOWN INDICATION
     Dosage: UNK
     Route: 065
     Dates: start: 20190313
  4. TRAMETINIB [Suspect]
     Active Substance: TRAMETINIB
     Indication: PRODUCT USED FOR UNKNOWN INDICATION
     Dosage: UNK
     Route: 065
     Dates: start: 20190313
  5. TAFINLAR [Suspect]
     Active Substance: DABRAFENIB MESYLATE
     Indication: PRODUCT USED FOR UNKNOWN INDICATION
     Dosage: 2 DF, QD
     Route: 065
     Dates: start: 20190716
  6. MEKINIST [Suspect]
     Active Substance: TRAMETINIB DIMETHYL SULFOXIDE
     Indication: PRODUCT USED FOR UNKNOWN INDICATION
     Dosage: 1 DF, QD
     Route: 065
     Dates: start: 20190716
  7. TRAMETINIB [Suspect]
     Active Substance: TRAMETINIB
     Dosage: 1 DF, QD
     Route: 065
     Dates: start: 20190729
  8. CEFTRIAXONE. [Suspect]
     Active Substance: CEFTRIAXONE
     Indication: PRODUCT USED FOR UNKNOWN INDICATION
     Dosage: UNK
     Route: 065
     Dates: start: 20190703
  9. METRONIDAZOLE. [Suspect]
     Active Substance: METRONIDAZOLE
     Indication: PRODUCT USED FOR UNKNOWN INDICATION
     Dosage: UNK
     Route: 065
     Dates: start: 20190703
  10. AMOXICILLIN TRIHYDRATE [Suspect]
     Active Substance: AMOXICILLIN
     Indication: PRODUCT USED FOR UNKNOWN INDICATION
     Dosage: UNK
     Route: 048
  11. DABRAFENIB [Suspect]
     Active Substance: DABRAFENIB
     Dosage: 2 DF, QD
     Route: 065
     Dates: start: 20190729

REACTIONS (48)
  - Colitis ischaemic [Recovered/Resolved]
  - Blood lactate dehydrogenase increased [Unknown]
  - Procalcitonin increased [Unknown]
  - Hyperreflexia [Recovered/Resolved]
  - Pain [Recovered/Resolved]
  - Weight decreased [Unknown]
  - Eastern Cooperative Oncology Group performance status [Recovered/Resolved]
  - Paraesthesia [Recovered/Resolved]
  - Abdominal pain [Recovered/Resolved]
  - Dyspepsia [Recovered/Resolved]
  - Jejunal ulcer perforation [Recovered/Resolved]
  - Metastases to liver [Recovered/Resolved]
  - Small intestine carcinoma [Recovered/Resolved]
  - Secretion discharge [Recovered/Resolved]
  - Inflammatory bowel disease [Recovered/Resolved]
  - Polyneuropathy [Recovered/Resolved]
  - Gastrointestinal wall thickening [Recovered/Resolved]
  - Ureteral disorder [Recovered/Resolved]
  - Malignant mesenteric neoplasm [Recovered/Resolved]
  - Omental necrosis [Recovered/Resolved]
  - Metastases to stomach [Recovered/Resolved]
  - Hypoaesthesia [Recovered/Resolved]
  - C-reactive protein increased [Unknown]
  - Metabolic disorder [Recovered/Resolved]
  - Renal cyst [Unknown]
  - General physical condition abnormal [Recovered/Resolved]
  - Lymphadenopathy [Recovered/Resolved]
  - Vomiting [Recovered/Resolved]
  - Metastases to lung [Recovered/Resolved]
  - Myalgia [Recovered/Resolved]
  - Ileal perforation [Recovered/Resolved]
  - Intervertebral disc degeneration [Unknown]
  - Lymphadenopathy [Recovered/Resolved]
  - Ulcer [Recovered/Resolved]
  - Metastases to heart [Recovered/Resolved]
  - Tissue infiltration [Recovered/Resolved]
  - Malaise [Recovered/Resolved]
  - Mucosal inflammation [Recovered/Resolved]
  - Metastases to adrenals [Recovered/Resolved]
  - B-cell lymphoma [Recovered/Resolved]
  - Back pain [Recovered/Resolved]
  - Rectal polyp [Recovered/Resolved]
  - Lymphadenitis [Recovered/Resolved]
  - Pyrexia [Recovered/Resolved]
  - Metastases to peritoneum [Recovered/Resolved]
  - Gastrointestinal disorder [Recovered/Resolved]
  - Pyrexia [Recovered/Resolved]
  - Abdominal pain [Recovered/Resolved]

NARRATIVE: CASE EVENT DATE: 20190114
